FAERS Safety Report 18927567 (Version 3)
Quarter: 2021Q2

REPORT INFORMATION
  Report Type: Report from Study
  Country: US (occurrence: US)
  Receive Date: 20210223
  Receipt Date: 20210406
  Transmission Date: 20210717
  Serious: Yes (Hospitalization)
  Sender: FDA-Public Use
  Company Number: US-B.I. PHARMACEUTICALS,INC./RIDGEFIELD-2020-BI-051264

PATIENT
  Age: 81 Year
  Sex: Male

DRUGS (2)
  1. OFEV [Suspect]
     Active Substance: NINTEDANIB
     Indication: IDIOPATHIC PULMONARY FIBROSIS
     Dosage: 100MG TWICE DAILY
     Route: 048
     Dates: start: 20200729
  2. OFEV [Suspect]
     Active Substance: NINTEDANIB
     Indication: CHRONIC OBSTRUCTIVE PULMONARY DISEASE

REACTIONS (8)
  - Gastric ulcer haemorrhage [Not Recovered/Not Resolved]
  - Hypotension [Not Recovered/Not Resolved]
  - Fall [Not Recovered/Not Resolved]
  - Dyspnoea [Not Recovered/Not Resolved]
  - Orthostatic hypotension [Unknown]
  - Weight increased [Not Recovered/Not Resolved]
  - Haematemesis [Not Recovered/Not Resolved]
  - Abstains from alcohol [Unknown]

NARRATIVE: CASE EVENT DATE: 20210215
